FAERS Safety Report 8879887 (Version 1)
Quarter: 2012Q4

REPORT INFORMATION
  Report Type: 
  Country: GB (occurrence: GB)
  Receive Date: 20121031
  Receipt Date: 20121031
  Transmission Date: 20130627
  Serious: Yes (Other)
  Sender: FDA-Public Use
  Company Number: GB-ASTRAZENECA-2012SE80499

PATIENT
  Age: 28 Year
  Sex: Female

DRUGS (4)
  1. BUPIVACAINE [Suspect]
     Indication: SPINAL ANAESTHESIA
     Route: 037
  2. MORPHINE [Suspect]
     Indication: SPINAL ANAESTHESIA
  3. FENTANYL [Suspect]
     Indication: ANALGESIC THERAPY
     Dosage: 2 UG/ML
  4. LEVOBUPIVACAINE [Suspect]
     Indication: ANALGESIC THERAPY

REACTIONS (4)
  - Complex regional pain syndrome [Unknown]
  - Forceps delivery [None]
  - Maternal exposure during delivery [None]
  - Peroneal nerve palsy [None]
